FAERS Safety Report 9502453 (Version 2)
Quarter: 2013Q3

REPORT INFORMATION
  Report Type: Report from Study
  Country: DE (occurrence: DE)
  Receive Date: 20130906
  Receipt Date: 20130906
  Transmission Date: 20140515
  Serious: Yes (Other)
  Sender: FDA-Public Use
  Company Number: DE-ROCHE-1270281

PATIENT
  Age: 75 Year
  Sex: Male
  Weight: 80 kg

DRUGS (6)
  1. ZELBORAF [Suspect]
     Indication: METASTATIC MALIGNANT MELANOMA
     Route: 048
     Dates: start: 20121001, end: 20130501
  2. OBSIDAN [Concomitant]
     Indication: HYPERTENSION
     Route: 048
  3. RAMIPRIL [Concomitant]
     Indication: HYPERTENSION
     Route: 048
  4. ALLOPURINOL [Concomitant]
     Indication: HYPERURICAEMIA
     Route: 048
  5. HCTZ [Concomitant]
     Indication: HYPERTENSION
     Route: 048
  6. METFORMIN [Concomitant]
     Indication: DIABETES MELLITUS
     Route: 048

REACTIONS (9)
  - Fatigue [Unknown]
  - Gastrointestinal disorder [Recovered/Resolved]
  - Hypoaesthesia [Recovered/Resolved]
  - Erythema [Recovered/Resolved]
  - Swelling face [Recovered/Resolved]
  - Rash [Recovered/Resolved]
  - Skin burning sensation [Recovered/Resolved]
  - Pruritus [Recovered/Resolved]
  - Alopecia [Recovered/Resolved]
